FAERS Safety Report 9459758 (Version 1)
Quarter: 2013Q3

REPORT INFORMATION
  Report Type: Report from Study
  Country: FR (occurrence: FR)
  Receive Date: 20130815
  Receipt Date: 20130815
  Transmission Date: 20140515
  Serious: Yes (Other)
  Sender: FDA-Public Use
  Company Number: FR-ASTELLAS-2013EU006970

PATIENT
  Age: 83 Year
  Sex: Male
  Weight: 72 kg

DRUGS (3)
  1. ENZALUTAMIDE [Suspect]
     Indication: PROSTATE CANCER
     Dosage: UNK MG, UNKNOWN/D
     Route: 048
     Dates: start: 20130607, end: 20130712
  2. KARDEGIC [Concomitant]
     Indication: AORTIC STENOSIS
     Dosage: 75 MG, UNKNOWN/D
     Route: 065
     Dates: start: 20091224
  3. TEMERIT [Concomitant]
     Indication: HYPERTENSION
     Dosage: 5 MG, UNKNOWN/D
     Route: 065
     Dates: start: 20091224

REACTIONS (4)
  - Colitis [Recovering/Resolving]
  - Tremor [Not Recovered/Not Resolved]
  - Back pain [Recovering/Resolving]
  - Asthenia [Not Recovered/Not Resolved]
